FAERS Safety Report 13553250 (Version 1)
Quarter: 2017Q2

REPORT INFORMATION
  Report Type: Spontaneous
  Country: US (occurrence: US)
  Receive Date: 20170516
  Receipt Date: 20170516
  Transmission Date: 20170830
  Serious: Yes (Hospitalization)
  Sender: FDA-Public Use
  Company Number: None

PATIENT
  Age: 48 Year
  Sex: Female
  Weight: 60.75 kg

DRUGS (7)
  1. VITAMIN C [Concomitant]
     Active Substance: ASCORBIC ACID
  2. MULTI-VITAMIN [Concomitant]
     Active Substance: .ALPHA.-TOCOPHEROL ACETATE, DL-\ASCORBIC ACID\CYANOCOBALAMIN\FLUORIDE ION\FOLIC ACID\NIACIN\PYRIDOXINE\RIBOFLAVIN\THIAMINE\VITAMIN A\VITAMIN D
  3. ATIVAN [Suspect]
     Active Substance: LORAZEPAM
     Indication: INNER EAR DISORDER
     Dosage: ?          QUANTITY:90 TABLET(S);?
     Route: 048
  4. EYE DROPS [Concomitant]
     Active Substance: UNSPECIFIED INGREDIENT
  5. ATIVAN [Suspect]
     Active Substance: LORAZEPAM
     Indication: ANXIETY
     Dosage: ?          QUANTITY:90 TABLET(S);?
     Route: 048
  6. VITAMIN D [Concomitant]
     Active Substance: CHOLECALCIFEROL
  7. VITAMIN B [Concomitant]
     Active Substance: VITAMIN B

REACTIONS (9)
  - Sedation [None]
  - Palpitations [None]
  - Product quality issue [None]
  - Drug effect decreased [None]
  - Insomnia [None]
  - Withdrawal syndrome [None]
  - Malaise [None]
  - Anxiety [None]
  - Dizziness [None]
